FAERS Safety Report 8318388-8 (Version None)
Quarter: 2012Q2

REPORT INFORMATION
  Report Type: 
  Country: None (occurrence: None)
  Receive Date: 20120427
  Receipt Date: 20120420
  Transmission Date: 20120825
  Serious: Yes (Hospitalization)
  Sender: FDA-Public Use
  Company Number: US-ABBOTT-12P-163-0910184-00

PATIENT
  Sex: Female
  Weight: 63.56 kg

DRUGS (9)
  1. PREDNISONE [Concomitant]
     Dosage: 5 MG ONCE A DAY FOR ANOTHER 3 DAYS
     Dates: end: 20120225
  2. PREDNISONE [Concomitant]
     Indication: PRODUCT USED FOR UNKNOWN INDICATION
     Dosage: TAPERED OFF
  3. PREDNISONE [Concomitant]
     Dosage: 10 MG FOLLOWING 3 DAYS
  4. HUMIRA [Suspect]
     Indication: COLITIS ULCERATIVE
     Dosage: 80MG LOADING DOSE
     Dates: start: 20120217, end: 20120217
  5. PREDNISONE [Concomitant]
     Dosage: 15 MG ONCE A DAY, FIRST 3 DAYS
  6. HUMIRA [Suspect]
     Dates: start: 20120302
  7. HUMIRA [Suspect]
     Dates: start: 20120412
  8. IRON [Concomitant]
     Indication: PRODUCT USED FOR UNKNOWN INDICATION
     Dosage: AS NEEDED
  9. PROBIOTIC [Concomitant]
     Indication: PRODUCT USED FOR UNKNOWN INDICATION
     Dosage: DAILY

REACTIONS (12)
  - KIDNEY INFECTION [None]
  - COLITIS ULCERATIVE [None]
  - GASTRIC INFECTION [None]
  - HAEMORRHAGE [None]
  - HYPERGLYCAEMIA [None]
  - SWELLING [None]
  - VIRAL INFECTION [None]
  - PANCREATITIS [None]
  - OFF LABEL USE [None]
  - DRUG INEFFECTIVE [None]
  - HEADACHE [None]
  - ILEUS [None]
